APPROVED DRUG PRODUCT: KLOXXADO
Active Ingredient: NALOXONE HYDROCHLORIDE
Strength: 4MG/SPRAY
Dosage Form/Route: SPRAY;NASAL
Application: N212045 | Product #002
Applicant: HIKMA PHARMACEUTICALS USA INC
Approved: Aug 25, 2025 | RLD: Yes | RS: No | Type: RX